FAERS Safety Report 5483524-8 (Version None)
Quarter: 2007Q4

REPORT INFORMATION
  Report Type: 
  Country: None (occurrence: None)
  Receive Date: 20071009
  Receipt Date: 20071001
  Transmission Date: 20080405
  Serious: Yes (Other)
  Sender: FDA-Public Use
  Company Number: 2007SP019963

PATIENT
  Age: 57 Year
  Sex: Female
  Weight: 98.8842 kg

DRUGS (2)
  1. PEG-INTRON [Suspect]
     Indication: HEPATITIS C
     Dosage: SC
     Route: 058
     Dates: start: 20070706
  2. RIBAVIRIN [Suspect]
     Indication: HEPATITIS C
     Dosage: PO
     Route: 048
     Dates: start: 20070706

REACTIONS (14)
  - ASTHENIA [None]
  - BONE PAIN [None]
  - DECREASED APPETITE [None]
  - DEHYDRATION [None]
  - DIARRHOEA [None]
  - FAECES DISCOLOURED [None]
  - FOOD CRAVING [None]
  - INFLUENZA LIKE ILLNESS [None]
  - NAUSEA [None]
  - RED BLOOD CELL COUNT DECREASED [None]
  - THYROID DISORDER [None]
  - VOMITING [None]
  - WEIGHT DECREASED [None]
  - WHITE BLOOD CELL COUNT DECREASED [None]
